FAERS Safety Report 5259231-3 (Version None)
Quarter: 2007Q1

REPORT INFORMATION
  Report Type: 
  Country: None (occurrence: None)
  Receive Date: 20070308
  Receipt Date: 20070226
  Transmission Date: 20070707
  Serious: Yes (Other)
  Sender: FDA-Public Use
  Company Number: US-PFIZER INC-2007015447

PATIENT
  Sex: Male
  Weight: 65.8 kg

DRUGS (8)
  1. XALATAN [Suspect]
     Indication: GLAUCOMA
     Dates: start: 20040101, end: 20050101
  2. TAMSULOSIN HCL [Concomitant]
  3. COSOPT [Concomitant]
  4. AMANTADINE HCL [Concomitant]
  5. ALL OTHER THERAPEUTIC PRODUCTS [Concomitant]
  6. LANOXIN [Concomitant]
  7. PLAVIX [Concomitant]
  8. ALL OTHER THERAPEUTIC PRODUCTS [Concomitant]

REACTIONS (8)
  - BEDRIDDEN [None]
  - CONJUNCTIVAL SCAR [None]
  - CORNEAL OPACITY [None]
  - DRUG EFFECT DECREASED [None]
  - EYE INFECTION [None]
  - SCLERAL DISORDER [None]
  - STAPHYLOCOCCAL INFECTION [None]
  - VISUAL ACUITY REDUCED [None]
